FAERS Safety Report 17307647 (Version 1)
Quarter: 2020Q1

REPORT INFORMATION
  Report Type: Spontaneous
  Country: US (occurrence: US)
  Receive Date: 20200123
  Receipt Date: 20200123
  Transmission Date: 20200409
  Serious: No
  Sender: FDA-Public Use
  Company Number: US-PFIZER INC-2020031204

PATIENT
  Age: 58 Year
  Sex: Female
  Weight: 54.42 kg

DRUGS (6)
  1. REMODULIN [Suspect]
     Active Substance: TREPROSTINIL
     Dosage: 0.025 UG/KG, UNK [0.025 ?G/KG, CONTINUING, IV DRIP]
     Route: 042
  2. REMODULIN [Suspect]
     Active Substance: TREPROSTINIL
     Indication: PULMONARY ARTERIAL HYPERTENSION
     Dosage: 0.020 UG/KG, UNK [0.020 ?G/KG, CONTINUOUS VIA INTRAVENOUS (IV) ROUTE]
     Route: 042
     Dates: start: 20181108
  3. TADALAFIL. [Suspect]
     Active Substance: TADALAFIL
     Dosage: UNK
  4. SILDENAFIL CITRATE. [Suspect]
     Active Substance: SILDENAFIL CITRATE
     Dosage: UNK
  5. REMODULIN [Suspect]
     Active Substance: TREPROSTINIL
     Dosage: 0.020 UG/KG, UNK [0.020 ?G/KG, CONTINUOUS VIA INTRAVENOUS (IV) ROUTE]
     Route: 042
  6. OPSUMIT [Suspect]
     Active Substance: MACITENTAN
     Dosage: UNK

REACTIONS (6)
  - Epistaxis [Unknown]
  - Headache [Unknown]
  - Abdominal pain upper [Unknown]
  - Feeling abnormal [Unknown]
  - Nausea [Unknown]
  - Constipation [Unknown]

NARRATIVE: CASE EVENT DATE: 2019
